FAERS Safety Report 17011836 (Version 1)
Quarter: 2019Q4

REPORT INFORMATION
  Report Type: Spontaneous
  Country: US (occurrence: US)
  Receive Date: 20191108
  Receipt Date: 20191108
  Transmission Date: 20200122
  Serious: Yes (Other)
  Sender: FDA-Public Use
  Company Number: US-SHIRE-US201936941

PATIENT
  Sex: Female

DRUGS (1)
  1. GATTEX [Suspect]
     Active Substance: TEDUGLUTIDE\WATER
     Indication: SHORT-BOWEL SYNDROME
     Dosage: 0.3 MILLILITER
     Route: 058
     Dates: start: 201903

REACTIONS (7)
  - Pneumonia [Unknown]
  - Feeding disorder [Unknown]
  - Vulvovaginal swelling [Unknown]
  - Pneumonia fungal [Unknown]
  - Diarrhoea [Unknown]
  - Fungal infection [Unknown]
  - Product container issue [Unknown]
